FAERS Safety Report 8409719-9 (Version None)
Quarter: 2012Q2

REPORT INFORMATION
  Report Type: 
  Country: None (occurrence: None)
  Receive Date: 20120323
  Receipt Date: 20110207
  Transmission Date: 20120825
  Serious: Yes (Other)
  Sender: FDA-Public Use
  Company Number: 163-21880-11020983

PATIENT
  Age: 48 Year
  Sex: Male

DRUGS (5)
  1. COUMADIN [Concomitant]
  2. LEVOTHYROXINE SODIUM [Concomitant]
  3. ZOMETA [Concomitant]
  4. REVLIMID [Suspect]
     Indication: MULTIPLE MYELOMA
     Dosage: 10 MG, ONCE DAILY FOR 21 DAYS, PO
     Route: 048
     Dates: start: 20091123
  5. BACTRIM [Concomitant]

REACTIONS (1)
  - THROMBOSIS [None]
